FAERS Safety Report 5637734-7 (Version None)
Quarter: 2008Q1

REPORT INFORMATION
  Report Type: 
  Country: None (occurrence: None)
  Receive Date: 20080219
  Receipt Date: 20080211
  Transmission Date: 20080703
  Serious: Yes (Other)
  Sender: FDA-Public Use
  Company Number: 2008US000348

PATIENT
  Age: 58 Year
  Sex: Female

DRUGS (3)
  1. PROGRAF [Suspect]
     Indication: LIVER TRANSPLANT
  2. MYCOPHENOLATE MOFETIL [Concomitant]
  3. CORTICOSTEROIDS [Concomitant]

REACTIONS (14)
  - BILE DUCT STENOSIS [None]
  - BIOPSY LIVER ABNORMAL [None]
  - CHRONIC OBSTRUCTIVE PULMONARY DISEASE [None]
  - GLUCOSE TOLERANCE IMPAIRED [None]
  - HEPATIC CANCER METASTATIC [None]
  - HEPATIC STEATOSIS [None]
  - HYPERCHOLESTEROLAEMIA [None]
  - HYPERLIPIDAEMIA [None]
  - HYPERTENSION [None]
  - LIVER ABSCESS [None]
  - LIVER TRANSPLANT REJECTION [None]
  - OSTEOPOROSIS [None]
  - POST PROCEDURAL BILE LEAK [None]
  - RENAL IMPAIRMENT [None]
